FAERS Safety Report 10141930 (Version 1)
Quarter: 2014Q2

REPORT INFORMATION
  Report Type: Spontaneous
  Country: FR (occurrence: FR)
  Receive Date: 20140429
  Receipt Date: 20140429
  Transmission Date: 20141212
  Serious: Yes (Hospitalization)
  Sender: FDA-Public Use
  Company Number: FR-BAXTER-2014BAX019872

PATIENT
  Age: 11 Year
  Sex: Female
  Weight: 26 kg

DRUGS (14)
  1. UROMITEXAN 5 G/50 ML, SOLUTION INJECTABLE POUR PERFUSION EN FLACON [Suspect]
     Indication: PROPHYLAXIS
     Route: 042
     Dates: start: 20131119, end: 20131120
  2. IFOSFAMIDE EG [Suspect]
     Indication: OSTEOSARCOMA
     Dosage: 3G/M2 2.9G
     Route: 042
     Dates: start: 20131119
  3. IFOSFAMIDE EG [Suspect]
     Dosage: 3G/M2 2.9G
     Route: 042
     Dates: start: 20131120
  4. IFOSFAMIDE EG [Suspect]
     Dosage: 3G/M2 2.9G
     Route: 042
     Dates: start: 20131218
  5. PLITICAN [Suspect]
     Indication: PRODUCT USED FOR UNKNOWN INDICATION
     Dosage: 1 UNIT
     Route: 042
     Dates: start: 20131119, end: 20131121
  6. DOXORUBICINE ACCORD [Suspect]
     Indication: OSTEOSARCOMA
     Route: 042
     Dates: start: 20131119, end: 20131119
  7. ACTISKENAN [Concomitant]
     Indication: PAIN
     Dosage: 1 UNIT
     Route: 048
     Dates: start: 20131120, end: 20131120
  8. PARACETAMOL MACOPHARMA [Concomitant]
     Indication: PAIN
     Route: 042
     Dates: start: 20131120, end: 20131121
  9. METHYLPREDNISOLONE MYLAN [Concomitant]
     Indication: PRODUCT USED FOR UNKNOWN INDICATION
     Route: 042
     Dates: start: 20131119, end: 20131121
  10. NEURONTIN [Concomitant]
     Indication: PRODUCT USED FOR UNKNOWN INDICATION
     Route: 065
  11. TEGRETOL [Concomitant]
     Indication: PRODUCT USED FOR UNKNOWN INDICATION
     Route: 065
  12. ZELITREX [Concomitant]
     Indication: PRODUCT USED FOR UNKNOWN INDICATION
     Route: 065
  13. ZOPHREN [Concomitant]
     Indication: PRODUCT USED FOR UNKNOWN INDICATION
     Route: 065
  14. DIFFU K [Concomitant]
     Indication: PRODUCT USED FOR UNKNOWN INDICATION
     Route: 065

REACTIONS (2)
  - Clonic convulsion [Recovered/Resolved]
  - Encephalopathy [Recovered/Resolved]
